FAERS Safety Report 8581781-2 (Version None)
Quarter: 2012Q3

REPORT INFORMATION
  Report Type: 
  Country: None (occurrence: None)
  Receive Date: 20120809
  Receipt Date: 20120808
  Transmission Date: 20120928
  Serious: Yes (Hospitalization)
  Sender: FDA-Public Use
  Company Number: PHHY2012SE068396

PATIENT
  Sex: Male

DRUGS (7)
  1. FELODIPINE [Concomitant]
  2. ENALAPRIL MALEATE [Suspect]
     Indication: HYPERTONIA
     Dosage: 1 DF, DAILY
     Route: 048
     Dates: end: 20120526
  3. LAMICTAL [Concomitant]
  4. TEGRETOL [Suspect]
     Dosage: UNK UKN, UNK
  5. SIMVASTATIN [Concomitant]
  6. ATENOLOL [Concomitant]
  7. TEGRETOL [Suspect]
     Indication: EPILEPSY
     Dosage: 800 MG, DAILY
     Route: 048

REACTIONS (4)
  - ABDOMINAL PAIN [None]
  - MUSCLE SPASMS [None]
  - HYPONATRAEMIA [None]
  - CONSTIPATION [None]
